FAERS Safety Report 15662517 (Version 1)
Quarter: 2018Q4

REPORT INFORMATION
  Report Type: Spontaneous
  Country: US (occurrence: US)
  Receive Date: 20181127
  Receipt Date: 20181127
  Transmission Date: 20190205
  Serious: No
  Sender: FDA-Public Use
  Company Number: US-ASTRAZENECA-2018SF53175

PATIENT
  Age: 14999 Day
  Sex: Female
  Weight: 54.4 kg

DRUGS (1)
  1. SYNAGIS [Suspect]
     Active Substance: PALIVIZUMAB
     Dosage: UNKNOWN DOSE
     Route: 030

REACTIONS (4)
  - Photophobia [Not Recovered/Not Resolved]
  - Device leakage [Unknown]
  - Eye irritation [Recovered/Resolved]
  - Device malfunction [Unknown]

NARRATIVE: CASE EVENT DATE: 20181116
